FAERS Safety Report 9240967 (Version 1)
Quarter: 2013Q2

REPORT INFORMATION
  Report Type: Spontaneous
  Country: US (occurrence: None)
  Receive Date: 20130418
  Receipt Date: 20130418
  Transmission Date: 20140414
  Serious: Yes (Other)
  Sender: FDA-Public Use
  Company Number: None

PATIENT
  Age: 63 Year
  Sex: 0

DRUGS (1)
  1. XTANDI 40MG ASTELLAS [Suspect]
     Indication: NEOPLASM MALIGNANT
     Dosage: 160MG QD PO
     Route: 048
     Dates: start: 20121031, end: 201304

REACTIONS (1)
  - Drug ineffective [None]
